FAERS Safety Report 7701741 (Version 2)
Quarter: 2012Q4

REPORT INFORMATION
  Report Type: 
  Country: IT (occurrence: IT)
  Receive Date: 20101209
  Receipt Date: 20120917
  Transmission Date: 20130627
  Serious: Yes (Other)
  Sender: FDA-Public Use
  Company Number: IT-ROCHE-537788

PATIENT

DRUGS (4)
  1. AVASTIN [Suspect]
     Indication: COLORECTAL CANCER METASTATIC
     Dosage: DAYS 1 AND 15, FORM: INFUSION
     Route: 042
  2. FLUOROURACIL [Suspect]
     Indication: COLORECTAL CANCER METASTATIC
     Dosage: TIMED-FLAT-INFUSION DAYS 1-2, 8-9, 15-16 AND 22-23
     Route: 065
  3. IRINOTECAN HYDROCHLORIDE [Suspect]
     Indication: COLORECTAL CANCER METASTATIC
     Dosage: WEEK ALTERNATING DOSING, FORM: INFUSION
     Route: 042
  4. OXALIPLATIN [Suspect]
     Indication: COLORECTAL CANCER METASTATIC
     Dosage: AT THREE INCREASING DOSING LEVELS (60-70-90 MG/M2) DAYS 8 AND 22 EVERY 4 WEEKS, FORM; INFUSION
     Route: 042

REACTIONS (15)
  - Mucosal inflammation [Unknown]
  - Stomatitis [Unknown]
  - Diarrhoea [Unknown]
  - Vomiting [Unknown]
  - Nausea [Unknown]
  - Erythema [Unknown]
  - Asthenia [Unknown]
  - Hypertension [Unknown]
  - Hypokalaemia [Unknown]
  - Hypertransaminasaemia [Unknown]
  - Alopecia [Unknown]
  - Neutropenia [Unknown]
  - Thrombocytopenia [Unknown]
  - Neurotoxicity [Unknown]
  - Epistaxis [Unknown]
